FAERS Safety Report 5718288-3 (Version None)
Quarter: 2008Q2

REPORT INFORMATION
  Report Type: 
  Country: None (occurrence: None)
  Receive Date: 20080425
  Receipt Date: 20070824
  Transmission Date: 20081010
  Serious: No
  Sender: FDA-Public Use
  Company Number: US-ASTRAZENECA-2007UW20297

PATIENT
  Age: 39 Year
  Sex: Female
  Weight: 50.8 kg

DRUGS (1)
  1. ZOMIG [Suspect]
     Indication: MIGRAINE
     Dosage: TAKES 2/ 2.5 MG TABLETS/DOSE.
     Route: 048
     Dates: start: 20060101

REACTIONS (1)
  - COELIAC DISEASE [None]
